FAERS Safety Report 9514831 (Version 1)
Quarter: 2013Q1

REPORT INFORMATION
  Report Type: Spontaneous
  Country: US (occurrence: None)
  Receive Date: 20130305
  Receipt Date: 20130305
  Transmission Date: 20140127
  Serious: Yes (Other)
  Sender: FDA-Public Use
  Company Number: 163-21880-12112042

PATIENT
  Age: 80 Year
  Sex: Male
  Weight: 83.46 kg

DRUGS (9)
  1. REVLIMID (LENALIDOMIDE) (25 MILLIGRAM, CAPSULES) [Suspect]
     Indication: PLASMA CELL MYELOMA
     Route: 048
     Dates: start: 201203, end: 2012
  2. AMLODIPINE BESYLATE (AMLODIPINE BESILATE) (UNKNOWN) [Concomitant]
  3. BENZONATATE (BENZONATATE) (UNKNOWN) [Concomitant]
  4. FISH OIL (FISH OIL) (UNKNOWN) [Concomitant]
  5. GLIPIZIDE (GLIPIZIDE) (TABLETS) [Concomitant]
  6. METOPROLOL SUCCINATE (METOPROLOL SUCCINATE) (UNKNOWN) [Concomitant]
  7. SERTRALINE HCL (SERTRALINE HYDROCHLORIDE) (UNKNOWN) [Concomitant]
  8. TI-FOL 500 (FEOGEN) (UNKNOWN) [Concomitant]
  9. VALACYCLOVIR (VALACICLOVIR HYDROCHLORIDE) (UNKNOWN) [Concomitant]

REACTIONS (1)
  - Pancytopenia [None]
